FAERS Safety Report 9897233 (Version 1)
Quarter: 2014Q1

REPORT INFORMATION
  Report Type: Spontaneous
  Country: FR (occurrence: FR)
  Receive Date: 20140214
  Receipt Date: 20140214
  Transmission Date: 20141002
  Serious: Yes (Hospitalization)
  Sender: FDA-Public Use
  Company Number: FR-ROCHE-1346470

PATIENT
  Age: 72 Year
  Sex: Male

DRUGS (12)
  1. ROCEPHINE [Suspect]
     Indication: EXTREMITY NECROSIS
     Route: 042
     Dates: start: 201309, end: 20140104
  2. STABLON [Suspect]
     Indication: DEPRESSED MOOD
     Route: 048
     Dates: start: 20131226, end: 20140104
  3. STABLON [Suspect]
     Indication: GENERAL PHYSICAL HEALTH DETERIORATION
  4. VANCOMYCINE [Suspect]
     Indication: EXTREMITY NECROSIS
     Route: 042
     Dates: start: 201309, end: 20140104
  5. GAVISCON (FRANCE) [Concomitant]
  6. LANTUS [Concomitant]
  7. NOVORAPID [Concomitant]
  8. EUPRESSYL [Concomitant]
  9. DISCOTRINE [Concomitant]
  10. RENAGEL [Concomitant]
     Indication: DIABETES MELLITUS
     Route: 065
  11. KARDEGIC [Concomitant]
     Route: 065
  12. PLAVIX [Concomitant]
     Indication: HYPERTENSION
     Route: 065

REACTIONS (1)
  - Acute generalised exanthematous pustulosis [Recovering/Resolving]
